FAERS Safety Report 4962371-7 (Version None)
Quarter: 2006Q1

REPORT INFORMATION
  Report Type: 
  Country: None (occurrence: None)
  Receive Date: 20060329
  Receipt Date: 20060317
  Transmission Date: 20060701
  Serious: Yes (Hospitalization, Other)
  Sender: FDA-Public Use
  Company Number: 2006038581

PATIENT
  Age: 81 Year
  Sex: Female
  Weight: 68.0396 kg

DRUGS (8)
  1. NORVASC [Suspect]
     Indication: HYPERTENSION
  2. HUMALOG [Concomitant]
  3. LANTUS [Concomitant]
  4. LESCOL XL [Concomitant]
  5. FUROSEMIDE [Concomitant]
  6. LISINOPRIL [Concomitant]
  7. METOPROLOL [Concomitant]
  8. VITAMIN B-12 [Concomitant]

REACTIONS (8)
  - BARRETT'S OESOPHAGUS [None]
  - BLOOD PRESSURE INCREASED [None]
  - CARCINOID TUMOUR [None]
  - CATARACT [None]
  - CATHETER RELATED COMPLICATION [None]
  - DEEP VEIN THROMBOSIS [None]
  - EYE DISORDER [None]
  - RENAL DISORDER [None]
